FAERS Safety Report 7027522-1 (Version None)
Quarter: 2010Q4

REPORT INFORMATION
  Report Type: 
  Country: None (occurrence: None)
  Receive Date: 20101004
  Receipt Date: 20100921
  Transmission Date: 20110411
  Serious: Yes (Hospitalization, Other)
  Sender: FDA-Public Use
  Company Number: PHHY2010FR63482

PATIENT
  Sex: Female

DRUGS (9)
  1. VALSARTAN  AND HYDROCHLOROTHIAZIDE [Suspect]
     Indication: HYPERTENSION
     Dosage: 1 DF, DAILY
     Route: 048
     Dates: end: 20100823
  2. LERCANIDIPINE [Suspect]
     Dosage: 10 MG, PER DAY
     Route: 048
     Dates: end: 20100823
  3. LEVEMIR [Suspect]
     Dosage: 27 UL PER DAY
     Route: 058
  4. NOVORAPID [Suspect]
     Indication: TYPE 1 DIABETES MELLITUS
     Dosage: 4 UI/DAY
     Route: 058
  5. LEVOTHYROXINE SODIUM [Concomitant]
     Dosage: 150 MCG/DAY
  6. VITAMIN B-12 [Concomitant]
     Dosage: 1 INJECTION/MONTH
  7. MOPRAL [Concomitant]
     Dosage: 40 MG/DAY
  8. CRESTOR [Concomitant]
     Dosage: 5 MG/DAY
  9. PLAVIX [Concomitant]
     Dosage: 75 MG PER DAY

REACTIONS (7)
  - FALL [None]
  - FATIGUE [None]
  - HYPERHIDROSIS [None]
  - HYPOGLYCAEMIA [None]
  - ORTHOSTATIC HYPOTENSION [None]
  - RENAL FAILURE [None]
  - RHABDOMYOLYSIS [None]
